FAERS Safety Report 7340731-7 (Version None)
Quarter: 2011Q1

REPORT INFORMATION
  Report Type: 
  Country: None (occurrence: None)
  Receive Date: 20110309
  Receipt Date: 20110303
  Transmission Date: 20110831
  Serious: Yes (Other)
  Sender: FDA-Public Use
  Company Number: AU-ROCHE-763416

PATIENT
  Sex: Female

DRUGS (1)
  1. ACCUTANE [Suspect]
     Dosage: FREQUENCY: EVERY SECOND DAY.
     Route: 048
     Dates: end: 20101201

REACTIONS (2)
  - PREGNANCY [None]
  - NO ADVERSE EVENT [None]
